FAERS Safety Report 15853476 (Version 1)
Quarter: 2018Q4

REPORT INFORMATION
  Report Type: Spontaneous
  Country: US (occurrence: US)
  Receive Date: 20181228
  Receipt Date: 20181228
  Transmission Date: 20190205
  Serious: Yes (Other)
  Sender: FDA-Public Use
  Company Number: None

PATIENT
  Age: 68 Year
  Sex: Female
  Weight: 51.26 kg

DRUGS (1)
  1. CAROSPIR [Suspect]
     Active Substance: SPIRONOLACTONE
     Indication: HYPERTENSION
     Route: 048
     Dates: start: 20181119, end: 20181120

REACTIONS (6)
  - Confusional state [None]
  - Blood pressure increased [None]
  - Balance disorder [None]
  - Mental impairment [None]
  - Dizziness [None]
  - Suicidal ideation [None]

NARRATIVE: CASE EVENT DATE: 20181119
